FAERS Safety Report 13343590 (Version 1)
Quarter: 2017Q1

REPORT INFORMATION
  Report Type: Spontaneous
  Country: US (occurrence: US)
  Receive Date: 20170316
  Receipt Date: 20170316
  Transmission Date: 20170428
  Serious: Yes (Other)
  Sender: FDA-Public Use
  Company Number: US-TEVA-748220USA

PATIENT
  Sex: Female

DRUGS (1)
  1. PROVIGIL [Suspect]
     Active Substance: MODAFINIL
     Indication: SLEEP DISORDER
     Route: 065

REACTIONS (3)
  - Hospitalisation [Unknown]
  - Rash [Unknown]
  - Oral disorder [Unknown]
